FAERS Safety Report 25891028 (Version 1)
Quarter: 2025Q4

REPORT INFORMATION
  Report Type: Spontaneous
  Country: US (occurrence: None)
  Receive Date: 20251007
  Receipt Date: 20251007
  Transmission Date: 20260117
  Serious: Yes (Hospitalization)
  Sender: FDA-CTU
  Company Number: None

PATIENT
  Age: 86 Year
  Sex: Female

DRUGS (1)
  1. RAYALDEE [Suspect]
     Active Substance: CALCIFEDIOL
     Indication: Hyperparathyroidism
     Dosage: 30 MG DAILY ORAL
     Route: 048

REACTIONS (4)
  - Pneumonia [None]
  - Cellulitis [None]
  - Cardiac failure congestive [None]
  - Hypervolaemia [None]
